FAERS Safety Report 6948342-X (Version None)
Quarter: 2010Q3

REPORT INFORMATION
  Report Type: 
  Country: None (occurrence: None)
  Receive Date: 20100828
  Receipt Date: 20091028
  Transmission Date: 20110219
  Serious: No
  Sender: FDA-Public Use
  Company Number: US-ABBOTT-09P-163-0605576-00

PATIENT
  Sex: Female

DRUGS (2)
  1. NIASPAN [Suspect]
     Indication: PRODUCT USED FOR UNKNOWN INDICATION
     Dosage: TAKEN NIGHTLY
     Route: 048
     Dates: start: 20090501
  2. NIASPAN [Suspect]
     Route: 048

REACTIONS (2)
  - DIZZINESS [None]
  - NIGHT SWEATS [None]
